FAERS Safety Report 4642350-X (Version None)
Quarter: 2005Q2

REPORT INFORMATION
  Report Type: 
  Country: None (occurrence: None)
  Receive Date: 20050421
  Receipt Date: 20050421
  Transmission Date: 20051028
  Serious: Yes (Other)
  Sender: FDA-Public Use
  Company Number: None

PATIENT
  Age: 54 Year
  Sex: Female

DRUGS (4)
  1. TRAMADOL [Suspect]
     Indication: ARTHRITIS
     Dosage: 2 TABLETS THREE TIMES DAILY
     Dates: start: 20050407
  2. TRAMADOL [Suspect]
     Indication: FIBROMYALGIA
     Dosage: 2 TABLETS THREE TIMES DAILY
     Dates: start: 20050407
  3. AMBIEN [Concomitant]
  4. ACTIVELLA [Concomitant]

REACTIONS (3)
  - DRUG INEFFECTIVE [None]
  - INADEQUATE ANALGESIA [None]
  - PHARMACEUTICAL PRODUCT COMPLAINT [None]
